FAERS Safety Report 22599759 (Version 1)
Quarter: 2023Q2

REPORT INFORMATION
  Report Type: Spontaneous
  Country: GB (occurrence: GB)
  Receive Date: 20230614
  Receipt Date: 20230614
  Transmission Date: 20230721
  Serious: Yes (Life-Threatening, Hospitalization, Other)
  Sender: FDA-Public Use
  Company Number: GB-PFIZER INC-202300219618

PATIENT
  Age: 64 Year
  Sex: Male

DRUGS (3)
  1. CYTARABINE [Suspect]
     Active Substance: CYTARABINE
     Indication: Myeloid leukaemia
     Dosage: UNK
  2. DOXORUBICIN [Suspect]
     Active Substance: DOXORUBICIN
     Indication: Myeloid leukaemia
     Dosage: UNK
  3. THIOGUANINE [Suspect]
     Active Substance: THIOGUANINE
     Indication: Myeloid leukaemia
     Dosage: UNK

REACTIONS (2)
  - Gangrene [Recovering/Resolving]
  - White blood cell count decreased [Recovered/Resolved]
